FAERS Safety Report 14289363 (Version 2)
Quarter: 2018Q1

REPORT INFORMATION
  Report Type: Spontaneous
  Country: US (occurrence: US)
  Receive Date: 20171214
  Receipt Date: 20180123
  Transmission Date: 20180509
  Serious: Yes (Other)
  Sender: FDA-Public Use
  Company Number: US-PFIZER INC-2017533340

PATIENT
  Age: 53 Year
  Sex: Female
  Weight: 67.13 kg

DRUGS (2)
  1. XELJANZ [Suspect]
     Active Substance: TOFACITINIB CITRATE
     Indication: RHEUMATOID ARTHRITIS
     Dosage: 5 MG, 2X/DAY
     Dates: start: 201401
  2. FLUOXETINE [Concomitant]
     Active Substance: FLUOXETINE HYDROCHLORIDE
     Indication: DEPRESSION
     Dosage: 10 MG, 1X/DAY
     Route: 048

REACTIONS (9)
  - Impaired gastric emptying [Not Recovered/Not Resolved]
  - Musculoskeletal stiffness [Unknown]
  - Drug dose omission [Not Recovered/Not Resolved]
  - Nephropathy [Unknown]
  - Joint stiffness [Unknown]
  - Somnolence [Unknown]
  - Intentional product misuse [Unknown]
  - Hypotension [Unknown]
  - Renal failure [Unknown]

NARRATIVE: CASE EVENT DATE: 2014
